FAERS Safety Report 16477102 (Version 2)
Quarter: 2019Q3

REPORT INFORMATION
  Report Type: Spontaneous
  Country: PT (occurrence: PT)
  Receive Date: 20190626
  Receipt Date: 20190705
  Transmission Date: 20191004
  Serious: Yes (Other)
  Sender: FDA-Public Use
  Company Number: PT-ROCHE-2339768

PATIENT
  Age: 16 Year
  Sex: Male

DRUGS (2)
  1. SOMATROPIN. [Suspect]
     Active Substance: SOMATROPIN
     Indication: DELAYED PUBERTY
     Route: 065
  2. TESTOSTERONE ENANTHATE. [Suspect]
     Active Substance: TESTOSTERONE ENANTHATE
     Indication: DELAYED PUBERTY
     Route: 030

REACTIONS (10)
  - Hyperphagia [Unknown]
  - Stubbornness [Unknown]
  - Impulsive behaviour [Unknown]
  - Aggression [Unknown]
  - Off label use [Unknown]
  - Obesity [Not Recovered/Not Resolved]
  - Cognitive disorder [Unknown]
  - Sleep apnoea syndrome [Not Recovered/Not Resolved]
  - Insulin resistance [Unknown]
  - Intentional product use issue [Unknown]
